FAERS Safety Report 4777307-1 (Version None)
Quarter: 2005Q3

REPORT INFORMATION
  Report Type: 
  Country: None (occurrence: None)
  Receive Date: 20050915
  Receipt Date: 20050902
  Transmission Date: 20060218
  Serious: Yes (Hospitalization, Other)
  Sender: FDA-Public Use
  Company Number: 2005070280

PATIENT
  Sex: Female

DRUGS (10)
  1. DETROL LA CAPSULE                 (TOLTERODINE L-TARTRATE) [Suspect]
     Indication: ILL-DEFINED DISORDER
     Dosage: 4 MG (4 MG, 1 IN 1 D)
  2. ACTONEL [Concomitant]
  3. THYROID TAB [Concomitant]
  4. ACETYLSALICYLIC ACID SRT [Concomitant]
  5. LABETALOL HCL [Concomitant]
  6. LOTREL [Concomitant]
  7. CLONIDINE [Concomitant]
  8. PLAVIX [Concomitant]
  9. ZETIA [Concomitant]
  10. ALPRAZOLAM [Concomitant]

REACTIONS (6)
  - CONDITION AGGRAVATED [None]
  - CORNEAL TRANSPLANT [None]
  - CYSTOCELE [None]
  - MALIGNANT HYPERTENSION [None]
  - PACEMAKER COMPLICATION [None]
  - VISION BLURRED [None]
